FAERS Safety Report 5126953-4 (Version None)
Quarter: 2006Q4

REPORT INFORMATION
  Report Type: 
  Country: None (occurrence: None)
  Receive Date: 20061013
  Receipt Date: 20061002
  Transmission Date: 20070319
  Serious: Yes (Hospitalization)
  Sender: FDA-Public Use
  Company Number: US-AMGEN-US195356

PATIENT
  Age: 36 Year
  Sex: Female

DRUGS (3)
  1. NEULASTA [Suspect]
     Indication: CHEMOTHERAPY
     Route: 058
     Dates: start: 20060901
  2. CYTOXAN [Concomitant]
     Route: 065
  3. ADRIAMYCIN PFS [Concomitant]
     Route: 065

REACTIONS (4)
  - MALAISE [None]
  - NAUSEA [None]
  - VOMITING [None]
  - WHITE BLOOD CELL COUNT INCREASED [None]
